FAERS Safety Report 5724733-X (Version None)
Quarter: 2008Q2

REPORT INFORMATION
  Report Type: 
  Country: None (occurrence: None)
  Receive Date: 20080501
  Receipt Date: 20080418
  Transmission Date: 20081010
  Serious: Yes (Hospitalization)
  Sender: FDA-Public Use
  Company Number: PHEH2008US03911

PATIENT
  Sex: Female

DRUGS (4)
  1. GLEEVEC [Suspect]
     Indication: GASTROINTESTINAL STROMAL TUMOUR
     Dosage: 400 MG, QD
     Route: 048
     Dates: start: 20060101, end: 20080301
  2. COZAAR [Concomitant]
  3. ZOCOR [Concomitant]
  4. APAP TAB [Concomitant]
     Dosage: UNK, PRN

REACTIONS (1)
  - HEPATIC ENCEPHALOPATHY [None]
